FAERS Safety Report 6043736-1 (Version None)
Quarter: 2009Q1

REPORT INFORMATION
  Report Type: 
  Country: None (occurrence: None)
  Receive Date: 20090120
  Receipt Date: 20090115
  Transmission Date: 20090719
  Serious: Yes (Death)
  Sender: FDA-Public Use
  Company Number: US-JNJFOC-20090104039

PATIENT
  Age: 55 Year
  Sex: Male

DRUGS (1)
  1. LEVAQUIN [Suspect]
     Indication: URINARY TRACT INFECTION
     Route: 065

REACTIONS (6)
  - DEATH [None]
  - HEPATIC LESION [None]
  - JAUNDICE CHOLESTATIC [None]
  - OESOPHAGEAL ULCER [None]
  - PLATELET DISORDER [None]
  - WHITE BLOOD CELL COUNT ABNORMAL [None]
